FAERS Safety Report 15977914 (Version 3)
Quarter: 2019Q1

REPORT INFORMATION
  Report Type: Report from Study
  Country: None (occurrence: SE)
  Receive Date: 20190218
  Receipt Date: 20190312
  Transmission Date: 20190418
  Serious: Yes (Hospitalization, Other)
  Sender: FDA-Public Use
  Company Number: SE-ABBVIE-19S-150-2661847-00

PATIENT
  Age: 68 Year
  Sex: Female
  Weight: 69 kg

DRUGS (5)
  1. DUODOPA [Suspect]
     Active Substance: CARBIDOPA\LEVODOPA
     Dosage: ADMINISTRATION INTO VENTRICLE
     Route: 050
     Dates: start: 201902
  2. DUODOPA [Suspect]
     Active Substance: CARBIDOPA\LEVODOPA
     Indication: PARKINSON^S DISEASE
     Route: 050
     Dates: start: 20190121, end: 20190205
  3. EUSAPRIM [Concomitant]
     Active Substance: SULFAMETHOXAZOLE\TRIMETHOPRIM
     Indication: PRODUCT USED FOR UNKNOWN INDICATION
     Route: 042
     Dates: start: 201902
  4. DUODOPA [Suspect]
     Active Substance: CARBIDOPA\LEVODOPA
     Dosage: MD IS INCREASED FROM 5 ML TO 8 ML?ED IS INCREASED FROM 0.9 ML TO 1 ML
     Route: 050
     Dates: start: 20190205, end: 20190209
  5. DUODOPA [Suspect]
     Active Substance: CARBIDOPA\LEVODOPA
     Dosage: CURRENT DOSAGE: MD: 8 ML, CD: 1.8 ML/H, ED 1 ML
     Route: 050
     Dates: start: 201902, end: 201902

REACTIONS (19)
  - Stoma site irritation [Unknown]
  - Stoma site pain [Unknown]
  - Abdominal pain [Not Recovered/Not Resolved]
  - Constipation [Not Recovered/Not Resolved]
  - Product administered at inappropriate site [Not Recovered/Not Resolved]
  - Gastrointestinal perforation [Unknown]
  - Haemoglobin decreased [Unknown]
  - Procedural intestinal perforation [Recovering/Resolving]
  - Abdominal operation [Recovering/Resolving]
  - On and off phenomenon [Not Recovered/Not Resolved]
  - Incorrect route of product administration [Unknown]
  - Procedural intestinal perforation [Recovered/Resolved]
  - Musculoskeletal stiffness [Not Recovered/Not Resolved]
  - Intestinal perforation [Recovering/Resolving]
  - Gastrointestinal infection [Recovering/Resolving]
  - C-reactive protein increased [Recovering/Resolving]
  - Procedural pain [Unknown]
  - Procedural pain [Not Recovered/Not Resolved]
  - Drug effect incomplete [Not Recovered/Not Resolved]

NARRATIVE: CASE EVENT DATE: 201902
